FAERS Safety Report 24228008 (Version 1)
Quarter: 2024Q3

REPORT INFORMATION
  Report Type: Report from Study
  Country: CN (occurrence: CN)
  Receive Date: 20240820
  Receipt Date: 20240820
  Transmission Date: 20241017
  Serious: Yes (Other)
  Sender: BAYER
  Company Number: CN-BAYER-2024A118454

PATIENT
  Age: 7 Decade
  Sex: Female

DRUGS (2)
  1. STIVARGA [Suspect]
     Active Substance: REGORAFENIB MONOHYDRATE
     Indication: Colon cancer
  2. STIVARGA [Suspect]
     Active Substance: REGORAFENIB MONOHYDRATE
     Indication: Antiangiogenic therapy

REACTIONS (3)
  - Nephrotic syndrome [None]
  - Acute kidney injury [None]
  - Mesangioproliferative glomerulonephritis [None]
